FAERS Safety Report 11832666 (Version 1)
Quarter: 2015Q4

REPORT INFORMATION
  Report Type: Report from Study
  Country: JP (occurrence: JP)
  Receive Date: 20151214
  Receipt Date: 20151214
  Transmission Date: 20160305
  Serious: Yes (Death)
  Sender: FDA-Public Use
  Company Number: JP-OTSUKA-2015_015839

PATIENT

DRUGS (18)
  1. PORTOLAC [Concomitant]
     Active Substance: LACTITOL
     Indication: HYPERAMMONAEMIA
     Dosage: 24 G, DAILY DOSE
     Route: 048
     Dates: end: 20150709
  2. DEXTROMETHORPHAN HYDROBROMIDE. [Concomitant]
     Active Substance: DEXTROMETHORPHAN HYDROBROMIDE
     Indication: BRONCHITIS
     Dosage: 45 MG, DAILY DOSE
     Route: 048
     Dates: start: 20150131, end: 20150709
  3. AMINOLEBAN [Concomitant]
     Active Substance: AMINO ACIDS
     Indication: HEPATIC CIRRHOSIS
     Dosage: 50 G, DAILY DOSE
     Route: 048
     Dates: end: 20150709
  4. ESOMEPRAZOLE MAGNESIUM. [Concomitant]
     Active Substance: ESOMEPRAZOLE MAGNESIUM
     Indication: GASTROOESOPHAGEAL REFLUX DISEASE
     Dosage: 20 MG, DAILY DOSE
     Route: 048
     Dates: end: 20150709
  5. KANAMYCIN SULFATE [Concomitant]
     Active Substance: KANAMYCIN SULFATE
     Indication: HYPERAMMONAEMIA
     Dosage: 500 MG, DAILY DOSE
     Route: 048
     Dates: end: 20150709
  6. L-CARTIN TABLETS 100MG [Concomitant]
     Indication: HYPERAMMONAEMIA
     Dosage: 1800 MG, DAILY DOSE
     Route: 048
     Dates: end: 20150709
  7. BROTIZOLAM [Concomitant]
     Active Substance: BROTIZOLAM
     Indication: INSOMNIA
     Dosage: 0.25 MG, DAILY DOSE
     Route: 048
     Dates: end: 20150709
  8. FUROSEMIDE. [Concomitant]
     Active Substance: FUROSEMIDE
     Dosage: 40 MG, DAILY DOSE
     Route: 048
     Dates: start: 20150117, end: 20150709
  9. MAGLAX [Concomitant]
     Active Substance: MAGNESIUM OXIDE
     Indication: CONSTIPATION
     Dosage: 990 MG, DAILY DOSE
     Route: 048
     Dates: end: 20150709
  10. SHAKUYAKUKANZOTO [Concomitant]
     Active Substance: HERBALS
     Indication: MUSCLE SPASMS
     Dosage: 2.5 G, DAILY DOSE
     Route: 048
     Dates: end: 20150709
  11. FUROSEMIDE. [Concomitant]
     Active Substance: FUROSEMIDE
     Indication: FLUID RETENTION
     Dosage: 20 MG, DAILY DOSE
     Route: 048
     Dates: end: 20150116
  12. HUMALOG MIX [Concomitant]
     Active Substance: INSULIN LISPRO
     Indication: DIABETES MELLITUS
     Dosage: 20 IU, DAILY DOSE
     Route: 058
     Dates: end: 20150709
  13. ALDACTONE A [Concomitant]
     Active Substance: SPIRONOLACTONE
     Indication: FLUID RETENTION
     Dosage: 50 MG, DAILY DOSE
     Route: 048
     Dates: start: 20150117, end: 20150709
  14. TAMSULOSIN HYDROCHLORIDE. [Concomitant]
     Active Substance: TAMSULOSIN HYDROCHLORIDE
     Indication: BENIGN PROSTATIC HYPERPLASIA
     Dosage: 0.2 MG, DAILY DOSE
     Route: 048
     Dates: end: 20150711
  15. URSODEOXYCHOLIC ACID [Concomitant]
     Active Substance: URSODIOL
     Indication: LIVER DISORDER
     Dosage: 300 MG, DAILY DOSE
     Route: 048
     Dates: end: 20150709
  16. TOLVAPTAN [Suspect]
     Active Substance: TOLVAPTAN
     Indication: FLUID RETENTION
     Dosage: 7.5 MG, QD, IN THE MORNING
     Route: 048
     Dates: start: 20141212, end: 20150709
  17. ALBUMINAR [Concomitant]
     Active Substance: ALBUMIN (HUMAN)
     Indication: OEDEMA DUE TO HEPATIC DISEASE
     Dosage: 100 ML, DAILY DOSE
     Route: 042
     Dates: start: 20150624, end: 20150626
  18. RISUMIC [Concomitant]
     Active Substance: AMEZINIUM METILSULFATE
     Indication: HYPOTENSION
     Dosage: 20 MG, DAILY DOSE
     Route: 048
     Dates: start: 20150327, end: 20150709

REACTIONS (2)
  - Death [Fatal]
  - Altered state of consciousness [Unknown]

NARRATIVE: CASE EVENT DATE: 20150709
